FAERS Safety Report 7865932-0 (Version None)
Quarter: 2011Q4

REPORT INFORMATION
  Report Type: 
  Country: None (occurrence: None)
  Receive Date: 20111028
  Receipt Date: 20110322
  Transmission Date: 20120403
  Serious: No
  Sender: FDA-Public Use
  Company Number: US-GLAXOSMITHKLINE-A0919437A

PATIENT
  Sex: Female

DRUGS (1)
  1. ADVAIR DISKUS 100/50 [Suspect]
     Indication: BRONCHITIS
     Route: 055

REACTIONS (8)
  - NAUSEA [None]
  - NERVOUSNESS [None]
  - MALAISE [None]
  - INSOMNIA [None]
  - DIZZINESS [None]
  - FEELING JITTERY [None]
  - CHEST PAIN [None]
  - PALPITATIONS [None]
